FAERS Safety Report 5096623-X (Version None)
Quarter: 2006Q3

REPORT INFORMATION
  Report Type: 
  Country: None (occurrence: None)
  Receive Date: 20060831
  Receipt Date: 20060814
  Transmission Date: 20061208
  Serious: Yes (Hospitalization)
  Sender: FDA-Public Use
  Company Number: DSA_28542_2006

PATIENT
  Age: 50 Year
  Sex: Male

DRUGS (3)
  1. TAVOR [Suspect]
     Dosage: 20 MG ONCE PO
     Route: 048
     Dates: start: 20060730, end: 20060730
  2. CARBAMAZEPINE [Suspect]
     Dates: start: 20060730, end: 20060730
  3. MARCUMAR [Suspect]
     Dosage: 297 MG ONCE PO
     Route: 048
     Dates: start: 20060730, end: 20060730

REACTIONS (5)
  - INTERNATIONAL NORMALISED RATIO INCREASED [None]
  - MULTIPLE DRUG OVERDOSE INTENTIONAL [None]
  - SOMNOLENCE [None]
  - SUICIDE ATTEMPT [None]
  - VOMITING [None]
